FAERS Safety Report 4636556-3 (Version None)
Quarter: 2005Q2

REPORT INFORMATION
  Report Type: 
  Country: None (occurrence: None)
  Receive Date: 20050415
  Receipt Date: 20050408
  Transmission Date: 20051028
  Serious: Yes (Death, Other)
  Sender: FDA-Public Use
  Company Number: PHBS2005AU05100

PATIENT
  Age: 41 Year
  Sex: Male

DRUGS (9)
  1. METHOTREXATE [Concomitant]
     Indication: STEM CELL TRANSPLANT
  2. BUSULPHAN [Concomitant]
  3. CYCLOPHOSPHAMIDE [Concomitant]
  4. HEPARIN [Concomitant]
  5. PREDNISOLONE [Concomitant]
     Dosage: 50 MG/D
  6. PREDNISOLONE [Concomitant]
     Dosage: 1 MG/KG/D
     Route: 065
  7. PREDNISOLONE [Concomitant]
     Dosage: 0.5 MG/KG/D
     Route: 065
  8. CYCLOSPORINE [Suspect]
     Indication: STEM CELL TRANSPLANT
     Route: 065
  9. CYCLOSPORINE [Suspect]
     Dosage: 200 MG/D
     Route: 065

REACTIONS (14)
  - ACUTE MYELOID LEUKAEMIA RECURRENT [None]
  - ANTINEUTROPHIL CYTOPLASMIC ANTIBODY POSITIVE [None]
  - DIARRHOEA [None]
  - GASTROINTESTINAL HAEMORRHAGE [None]
  - GLOMERULONEPHRITIS MEMBRANOUS [None]
  - GRAFT VERSUS HOST DISEASE [None]
  - HYPOALBUMINAEMIA [None]
  - LIVER FUNCTION TEST ABNORMAL [None]
  - NEPHROTIC SYNDROME [None]
  - OEDEMA PERIPHERAL [None]
  - PROTEINURIA [None]
  - RENAL VEIN THROMBOSIS [None]
  - SEPSIS [None]
  - THROMBOCYTOPENIA [None]
